FAERS Safety Report 12744899 (Version 1)
Quarter: 2016Q3

REPORT INFORMATION
  Report Type: Other
  Country: US (occurrence: US)
  Receive Date: 20160915
  Receipt Date: 20160915
  Transmission Date: 20161109
  Serious: Yes (Other)
  Sender: FDA-Public Use
  Company Number: US-HETERO LABS LTD-1057336

PATIENT
  Age: 54 Year
  Sex: Female

DRUGS (3)
  1. EFAVIRENZ [Concomitant]
     Active Substance: EFAVIRENZ
     Route: 065
  2. EMTRICITABINE [Concomitant]
     Active Substance: EMTRICITABINE
     Route: 065
  3. TENOFOVIR [Suspect]
     Active Substance: TENOFOVIR
     Route: 065

REACTIONS (2)
  - Familial periodic paralysis [Unknown]
  - Fanconi syndrome [Unknown]
